FAERS Safety Report 10334898 (Version 1)
Quarter: 2014Q3

REPORT INFORMATION
  Report Type: Report from Study
  Country: US (occurrence: US)
  Receive Date: 20140723
  Receipt Date: 20140723
  Transmission Date: 20150326
  Serious: Yes (Hospitalization, Other)
  Sender: FDA-Public Use
  Company Number: US-ROCHE-1436800

PATIENT
  Age: 17 Year
  Sex: Male
  Weight: 79 kg

DRUGS (4)
  1. NUTROPIN AQ [Suspect]
     Active Substance: SOMATROPIN
     Indication: HYPOPITUITARISM
     Dosage: QD
     Route: 058
  2. LEVOTHYROXINE [Concomitant]
     Active Substance: LEVOTHYROXINE
     Route: 048
  3. DDAVP [Concomitant]
     Active Substance: DESMOPRESSIN ACETATE
  4. HYDROCORTISONE. [Concomitant]
     Active Substance: HYDROCORTISONE
     Route: 048

REACTIONS (8)
  - Insulin-like growth factor increased [Recovered/Resolved]
  - Convulsion [Unknown]
  - Insulin-like growth factor increased [Recovered/Resolved]
  - Hypotonia [Unknown]
  - Self injurious behaviour [Unknown]
  - Aggression [Unknown]
  - Urinary incontinence [Unknown]
  - Abnormal weight gain [Unknown]

NARRATIVE: CASE EVENT DATE: 20111215
